FAERS Safety Report 13667039 (Version 1)
Quarter: 2017Q2

REPORT INFORMATION
  Report Type: Spontaneous
  Country: US (occurrence: US)
  Receive Date: 20170619
  Receipt Date: 20170619
  Transmission Date: 20170830
  Serious: No
  Sender: FDA-Public Use
  Company Number: US-ROCHE-1356093

PATIENT
  Sex: Male

DRUGS (3)
  1. TEMOZOLOMIDE. [Concomitant]
     Active Substance: TEMOZOLOMIDE
     Dosage: ONCE DAILY ON DAYS 10-14 OF 28 DAY CYCLE
     Route: 048
     Dates: start: 20130921
  2. SANDOSTATIN [Suspect]
     Active Substance: OCTREOTIDE ACETATE
     Indication: PRODUCT USED FOR UNKNOWN INDICATION
     Route: 065
  3. XELODA [Suspect]
     Active Substance: CAPECITABINE
     Indication: NEUROENDOCRINE TUMOUR
     Dosage: 14 DAYS ON, 14 DAYS OFF
     Route: 048
     Dates: start: 20130921

REACTIONS (1)
  - Flatulence [Not Recovered/Not Resolved]
